FAERS Safety Report 5778010-1 (Version None)
Quarter: 2008Q2

REPORT INFORMATION
  Report Type: 
  Country: None (occurrence: None)
  Receive Date: 20080617
  Receipt Date: 20080601
  Transmission Date: 20081010
  Serious: Yes (Hospitalization)
  Sender: FDA-Public Use
  Company Number: 1-16220005

PATIENT
  Age: 20 Year
  Sex: Male
  Weight: 72.5755 kg

DRUGS (1)
  1. SOLODYN [Suspect]
     Indication: ACNE
     Dosage: 90 MG DAILY ORAL
     Route: 048
     Dates: start: 20080130, end: 20080314

REACTIONS (6)
  - CHILLS [None]
  - DRUG TOXICITY [None]
  - HEADACHE [None]
  - JOINT SWELLING [None]
  - PYREXIA [None]
  - RASH [None]
